FAERS Safety Report 13458202 (Version 2)
Quarter: 2018Q1

REPORT INFORMATION
  Report Type: Spontaneous
  Country: US (occurrence: US)
  Receive Date: 20170419
  Receipt Date: 20180207
  Transmission Date: 20180508
  Serious: No
  Sender: FDA-Public Use
  Company Number: US-ELI_LILLY_AND_COMPANY-US201704005723

PATIENT
  Age: 72 Year
  Sex: Male

DRUGS (8)
  1. HUMALOG [Suspect]
     Active Substance: INSULIN LISPRO
     Indication: TYPE 2 DIABETES MELLITUS
     Dosage: 25 U, DAILY
     Route: 058
     Dates: start: 201501
  2. HUMALOG [Suspect]
     Active Substance: INSULIN LISPRO
     Dosage: 25 U, DAILY
     Route: 058
     Dates: start: 201501
  3. HUMALOG [Suspect]
     Active Substance: INSULIN LISPRO
     Dosage: 35 U, PRN
     Route: 058
     Dates: start: 201501
  4. HUMALOG [Suspect]
     Active Substance: INSULIN LISPRO
     Dosage: 35 U, PRN
     Route: 058
     Dates: start: 201501
  5. HUMALOG [Suspect]
     Active Substance: INSULIN LISPRO
     Dosage: 10-12 U, PRN WITH EACH MEAL
     Route: 058
  6. HUMALOG [Suspect]
     Active Substance: INSULIN LISPRO
     Dosage: 8-10 U, PRN WITH EACH MEAL
     Route: 058
  7. METFORMIN [Concomitant]
     Active Substance: METFORMIN HYDROCHLORIDE
     Indication: TYPE 2 DIABETES MELLITUS
     Dosage: 1 DF, BID WITH MEALS
  8. LANTUS [Concomitant]
     Active Substance: INSULIN GLARGINE
     Indication: TYPE 2 DIABETES MELLITUS
     Dosage: UNK, PRN

REACTIONS (1)
  - Underdose [Unknown]

NARRATIVE: CASE EVENT DATE: 201501
